FAERS Safety Report 21237853 (Version 3)
Quarter: 2022Q3

REPORT INFORMATION
  Report Type: Spontaneous
  Country: US (occurrence: US)
  Receive Date: 20220822
  Receipt Date: 20220903
  Transmission Date: 20221026
  Serious: No
  Sender: FDA-Public Use
  Company Number: US-TEVA-2022-US-2065477

PATIENT
  Age: 58 Year
  Sex: Female
  Weight: 102.06 kg

DRUGS (5)
  1. PROAIR HFA [Suspect]
     Active Substance: ALBUTEROL SULFATE
     Indication: Dyspnoea
     Dosage: 2 PUFFS 4 TIMES A DAY AS NEEDED
     Route: 055
     Dates: start: 20220811
  2. PROAIR HFA [Suspect]
     Active Substance: ALBUTEROL SULFATE
     Indication: Asthma
     Route: 055
     Dates: start: 2020, end: 20220815
  3. MECLIZINE [Concomitant]
     Active Substance: MECLIZINE HYDROCHLORIDE
     Indication: Vertigo
  4. utezepam [Concomitant]
     Indication: Product used for unknown indication
     Dosage: AT NIGHT
  5. TRAZODONE [Concomitant]
     Active Substance: TRAZODONE HYDROCHLORIDE
     Indication: Product used for unknown indication
     Dosage: AT NIGHT

REACTIONS (4)
  - Wheezing [Recovered/Resolved]
  - Vertigo [Not Recovered/Not Resolved]
  - Drug ineffective [Unknown]
  - Device defective [Unknown]

NARRATIVE: CASE EVENT DATE: 20220101
